FAERS Safety Report 25952869 (Version 2)
Quarter: 2025Q4

REPORT INFORMATION
  Report Type: Report from Study
  Country: CA (occurrence: CA)
  Receive Date: 20251023
  Receipt Date: 20251230
  Transmission Date: 20260118
  Serious: Yes (Death)
  Sender: ALEXION PHARMACEUTICALS
  Company Number: CA-AstraZeneca-CH-00976259A

PATIENT
  Sex: Female

DRUGS (1)
  1. DURVALUMAB [Suspect]
     Active Substance: DURVALUMAB
     Indication: Small cell lung cancer metastatic
     Dates: start: 20250408, end: 20250709

REACTIONS (1)
  - Death [Fatal]
